FAERS Safety Report 14477168 (Version 1)
Quarter: 2018Q1

REPORT INFORMATION
  Report Type: Report from Study
  Country: US (occurrence: US)
  Receive Date: 20180201
  Receipt Date: 20180201
  Transmission Date: 20180509
  Serious: No
  Sender: FDA-Public Use
  Company Number: US-EXELIXIS-CABO-17010553

PATIENT
  Sex: Male
  Weight: 60.77 kg

DRUGS (18)
  1. DESCOVY [Concomitant]
     Active Substance: EMTRICITABINE\TENOFOVIR ALAFENAMIDE FUMARATE
  2. ONDANSETRON [Concomitant]
     Active Substance: ONDANSETRON
  3. OXYCONTIN [Concomitant]
     Active Substance: OXYCODONE HYDROCHLORIDE
  4. DULOXETINE HCL [Concomitant]
     Active Substance: DULOXETINE HYDROCHLORIDE
  5. DRONABINOL. [Concomitant]
     Active Substance: DRONABINOL
  6. AMLODIPINE BESYLATE. [Concomitant]
     Active Substance: AMLODIPINE BESYLATE
  7. OXYCODONE AND ACETAMINOPHEN [Concomitant]
     Active Substance: ACETAMINOPHEN\OXYCODONE HYDROCHLORIDE
  8. LENVIMA [Suspect]
     Active Substance: LENVATINIB
  9. AFINITOR [Suspect]
     Active Substance: EVEROLIMUS
  10. OXYCODONE HYDROCHLORIDE. [Concomitant]
     Active Substance: OXYCODONE HYDROCHLORIDE
  11. NORVIR [Concomitant]
     Active Substance: RITONAVIR
  12. GABAPENTIN. [Concomitant]
     Active Substance: GABAPENTIN
  13. TRUVADA [Concomitant]
     Active Substance: EMTRICITABINE\TENOFOVIR DISOPROXIL FUMARATE
  14. SILVER SULFADIAZINE. [Concomitant]
     Active Substance: SILVER SULFADIAZINE
  15. REYATAZ [Concomitant]
     Active Substance: ATAZANAVIR SULFATE
  16. VITAMIN D3 [Concomitant]
     Active Substance: CHOLECALCIFEROL
  17. GLUCERNA [Concomitant]
     Active Substance: AMINO ACIDS\DEXTROSE\ELECTROLYTES NOS\SOYBEAN OIL\VITAMINS
  18. CABOMETYX [Suspect]
     Active Substance: CABOZANTINIB S-MALATE
     Indication: RENAL CANCER
     Dosage: 20 MG, QD
     Route: 048
     Dates: start: 20170608

REACTIONS (3)
  - Adverse drug reaction [Recovering/Resolving]
  - Skin discolouration [Unknown]
  - Neuropathy peripheral [Unknown]
